FAERS Safety Report 23507171 (Version 1)
Quarter: 2024Q1

REPORT INFORMATION
  Report Type: Spontaneous
  Country: US (occurrence: US)
  Receive Date: 20240209
  Receipt Date: 20240209
  Transmission Date: 20240409
  Serious: Yes (Other)
  Sender: FDA-Public Use
  Company Number: US-PFIZER INC-PV202400018892

PATIENT
  Age: 74 Year
  Sex: Female

DRUGS (1)
  1. INLYTA [Suspect]
     Active Substance: AXITINIB
     Indication: Renal cell carcinoma
     Dosage: 5 MG, 2X/DAY
     Route: 048
     Dates: start: 20240119

REACTIONS (8)
  - Cataract [Unknown]
  - Depressed mood [Unknown]
  - Feeling cold [Unknown]
  - Constipation [Unknown]
  - Oral disorder [Unknown]
  - Iron deficiency anaemia [Unknown]
  - Weight decreased [Unknown]
  - BRCA2 gene mutation [Unknown]
